FAERS Safety Report 20125665 (Version 1)
Quarter: 2021Q4

REPORT INFORMATION
  Report Type: Report from Study
  Country: US (occurrence: US)
  Receive Date: 20211129
  Receipt Date: 20211129
  Transmission Date: 20220303
  Serious: Yes (Hospitalization, Other)
  Sender: FDA-Public Use
  Company Number: US-TAKEDA-US201934399

PATIENT
  Age: 51 Year
  Sex: Male
  Weight: 78.912 kg

DRUGS (16)
  1. TEDUGLUTIDE [Suspect]
     Active Substance: TEDUGLUTIDE
     Indication: Short-bowel syndrome
     Dosage: 4.3 MILLIGRAM (TED DAILY DOSE MG KG 0.05, TED DOSES PER WEEK 7)
     Route: 065
     Dates: start: 20171117, end: 20171130
  2. TEDUGLUTIDE [Suspect]
     Active Substance: TEDUGLUTIDE
     Indication: Short-bowel syndrome
     Dosage: 4.3 MILLIGRAM (TED DAILY DOSE MG KG 0.05, TED DOSES PER WEEK 7)
     Route: 065
     Dates: start: 20171117, end: 20171130
  3. TEDUGLUTIDE [Suspect]
     Active Substance: TEDUGLUTIDE
     Indication: Short-bowel syndrome
     Dosage: 4.3 MILLIGRAM (TED DAILY DOSE MG KG 0.05, TED DOSES PER WEEK 7)
     Route: 065
     Dates: start: 20171117, end: 20171130
  4. TEDUGLUTIDE [Suspect]
     Active Substance: TEDUGLUTIDE
     Indication: Short-bowel syndrome
     Dosage: 4.3 MILLIGRAM (TED DAILY DOSE MG KG 0.05, TED DOSES PER WEEK 7)
     Route: 065
     Dates: start: 20171117, end: 20171130
  5. TEDUGLUTIDE [Suspect]
     Active Substance: TEDUGLUTIDE
     Dosage: 3.8 MILLIGRAM (TED DAILY DOSE MG KG 0.05, TED DOSES PER WEEK 7)
     Route: 065
     Dates: start: 201807, end: 20191003
  6. TEDUGLUTIDE [Suspect]
     Active Substance: TEDUGLUTIDE
     Dosage: 3.8 MILLIGRAM (TED DAILY DOSE MG KG 0.05, TED DOSES PER WEEK 7)
     Route: 065
     Dates: start: 201807, end: 20191003
  7. TEDUGLUTIDE [Suspect]
     Active Substance: TEDUGLUTIDE
     Dosage: 3.8 MILLIGRAM (TED DAILY DOSE MG KG 0.05, TED DOSES PER WEEK 7)
     Route: 065
     Dates: start: 201807, end: 20191003
  8. TEDUGLUTIDE [Suspect]
     Active Substance: TEDUGLUTIDE
     Dosage: 3.8 MILLIGRAM (TED DAILY DOSE MG KG 0.05, TED DOSES PER WEEK 7)
     Route: 065
     Dates: start: 201807, end: 20191003
  9. TEDUGLUTIDE [Suspect]
     Active Substance: TEDUGLUTIDE
     Dosage: 3.8 MILLIGRAM (TED DAILY DOSE MG KG 0.04, TED DOSES PER WEEK 7)
     Route: 065
     Dates: start: 20191010
  10. TEDUGLUTIDE [Suspect]
     Active Substance: TEDUGLUTIDE
     Dosage: 3.8 MILLIGRAM (TED DAILY DOSE MG KG 0.04, TED DOSES PER WEEK 7)
     Route: 065
     Dates: start: 20191010
  11. TEDUGLUTIDE [Suspect]
     Active Substance: TEDUGLUTIDE
     Dosage: 3.8 MILLIGRAM (TED DAILY DOSE MG KG 0.04, TED DOSES PER WEEK 7)
     Route: 065
     Dates: start: 20191010
  12. TEDUGLUTIDE [Suspect]
     Active Substance: TEDUGLUTIDE
     Dosage: 3.8 MILLIGRAM (TED DAILY DOSE MG KG 0.04, TED DOSES PER WEEK 7)
     Route: 065
     Dates: start: 20191010
  13. LOMOTIL [Concomitant]
     Active Substance: ATROPINE SULFATE\DIPHENOXYLATE HYDROCHLORIDE
     Indication: Diarrhoea
  14. VANCOMYCIN [Concomitant]
     Active Substance: VANCOMYCIN
     Indication: Staphylococcal infection
  15. BACTRIM [Concomitant]
     Active Substance: SULFAMETHOXAZOLE\TRIMETHOPRIM
     Indication: Bacteraemia
  16. ATIVAN [Concomitant]
     Active Substance: LORAZEPAM
     Indication: Schizophrenia

REACTIONS (1)
  - Bacteraemia [Recovered/Resolved]

NARRATIVE: CASE EVENT DATE: 20190830
